FAERS Safety Report 5379201-4 (Version None)
Quarter: 2007Q3

REPORT INFORMATION
  Report Type: 
  Country: None (occurrence: None)
  Receive Date: 20070705
  Receipt Date: 20070626
  Transmission Date: 20080115
  Serious: Yes (Death)
  Sender: FDA-Public Use
  Company Number: AU-BRISTOL-MYERS SQUIBB COMPANY-13833942

PATIENT
  Sex: Male

DRUGS (1)
  1. DIABEX [Suspect]
     Indication: TYPE 2 DIABETES MELLITUS

REACTIONS (3)
  - GLOMERULAR FILTRATION RATE DECREASED [None]
  - MALAISE [None]
  - VOMITING [None]
